FAERS Safety Report 5501810-X (Version None)
Quarter: 2007Q4

REPORT INFORMATION
  Report Type: 
  Country: None (occurrence: None)
  Receive Date: 20071018
  Receipt Date: 20070813
  Transmission Date: 20080405
  Serious: Yes (Hospitalization)
  Sender: FDA-Public Use
  Company Number: PHEH2007US10278

PATIENT
  Age: 75 Year
  Sex: Female
  Weight: 83.4 kg

DRUGS (8)
  1. EXFORGE [Suspect]
     Indication: HYPERTENSION
     Dosage: 5/320MG, QD, ORAL
     Route: 048
     Dates: start: 20070713, end: 20070719
  2. SYNTHROID [Concomitant]
  3. PRAVACHOL [Concomitant]
  4. ZETIA [Concomitant]
  5. SPIRONOLACTONE [Concomitant]
  6. TOPROL-XL [Concomitant]
  7. ACIPHEX [Concomitant]
  8. AMBIEN [Concomitant]

REACTIONS (3)
  - ATRIAL FIBRILLATION [None]
  - HEADACHE [None]
  - VISION BLURRED [None]
